FAERS Safety Report 9467181 (Version 1)
Quarter: 2013Q3

REPORT INFORMATION
  Report Type: Spontaneous
  Country: FR (occurrence: FR)
  Receive Date: 20130821
  Receipt Date: 20130821
  Transmission Date: 20140515
  Serious: Yes (Hospitalization)
  Sender: FDA-Public Use
  Company Number: FR-ABBOTT-13X-056-1134751-00

PATIENT
  Age: 18 Year
  Sex: Female

DRUGS (3)
  1. DEPAKINE [Suspect]
     Indication: GRAND MAL CONVULSION
     Route: 042
     Dates: start: 20130718, end: 20130721
  2. PRODILANTIN [Concomitant]
     Indication: PRODUCT USED FOR UNKNOWN INDICATION
     Dates: start: 20130718
  3. DEPAKINE [Concomitant]
     Indication: PRODUCT USED FOR UNKNOWN INDICATION

REACTIONS (8)
  - Intracranial pressure increased [Unknown]
  - Hyperammonaemic encephalopathy [Recovered/Resolved]
  - Hyperammonaemia [Recovered/Resolved]
  - Coma [Recovered/Resolved]
  - Disturbance in attention [Unknown]
  - Coma scale abnormal [Recovering/Resolving]
  - Blood pressure decreased [Unknown]
  - Heart rate increased [Unknown]
